FAERS Safety Report 6928731-X (Version None)
Quarter: 2010Q3

REPORT INFORMATION
  Report Type: 
  Country: None (occurrence: None)
  Receive Date: 20100817
  Receipt Date: 20100810
  Transmission Date: 20110219
  Serious: Yes (Hospitalization)
  Sender: FDA-Public Use
  Company Number: R0012850A

PATIENT
  Sex: Female

DRUGS (4)
  1. BLINDED VACCINE [Suspect]
     Route: 030
     Dates: start: 20100511, end: 20100511
  2. POLIO SABIN [Suspect]
     Route: 048
     Dates: start: 20100511, end: 20100511
  3. TRITANRIX-HEPB/HIB [Suspect]
     Route: 030
     Dates: start: 20100511, end: 20100511
  4. AMOXICILLIN AND CLAVULANATE POTASSIUM [Suspect]
     Indication: UPPER RESPIRATORY TRACT INFECTION
     Route: 048
     Dates: start: 20100805, end: 20100807

REACTIONS (2)
  - GASTROENTERITIS [None]
  - UPPER RESPIRATORY TRACT INFECTION [None]
